FAERS Safety Report 15599114 (Version 2)
Quarter: 2018Q4

REPORT INFORMATION
  Report Type: Spontaneous
  Country: GB (occurrence: GB)
  Receive Date: 20181108
  Receipt Date: 20181109
  Transmission Date: 20190205
  Serious: Yes (Death, Hospitalization)
  Sender: FDA-Public Use
  Company Number: GB-MYLANLABS-2018M1068338

PATIENT
  Sex: Male

DRUGS (2)
  1. CLOZARIL [Suspect]
     Active Substance: CLOZAPINE
     Indication: SCHIZOPHRENIA
     Dosage: UNK
     Route: 048
     Dates: start: 20030704, end: 2018
  2. CLOZARIL [Suspect]
     Active Substance: CLOZAPINE
     Dosage: UNK
     Route: 048
     Dates: start: 2018, end: 20181002

REACTIONS (3)
  - Renal failure [Recovering/Resolving]
  - Intestinal obstruction [Unknown]
  - Death [Fatal]

NARRATIVE: CASE EVENT DATE: 2018
